FAERS Safety Report 8893676 (Version 1)
Quarter: 2012Q4

REPORT INFORMATION
  Report Type: 
  Country: US (occurrence: US)
  Receive Date: 20121107
  Receipt Date: 20121107
  Transmission Date: 20130627
  Serious: No
  Sender: FDA-Public Use
  Company Number: US-AMGEN-USASP2011060422

PATIENT
  Age: 72 Year
  Sex: Female
  Weight: 54.88 kg

DRUGS (13)
  1. ENBREL [Suspect]
     Indication: PRODUCT USED FOR UNKNOWN INDICATION
     Dosage: 50 mg, qwk
  2. PHENOBARB                          /00023201/ [Concomitant]
     Dosage: 15 mg, UNK
     Route: 048
  3. ARAVA [Concomitant]
     Dosage: 10 mg, UNK
     Route: 048
  4. HYDROXYCHLOROQUINE [Concomitant]
     Dosage: 200 mg, UNK
     Route: 048
  5. FOLIC ACID [Concomitant]
     Dosage: 1 mg, UNK
     Route: 048
  6. CELEBREX [Concomitant]
  7. METHOTREXATE [Concomitant]
     Dosage: 2.5 mg, UNK
     Route: 048
  8. TRAMADOL HCL [Concomitant]
     Dosage: 50 mg, UNK
     Route: 048
  9. ASPIRIN [Concomitant]
     Dosage: 81 mg, UNK
     Route: 048
  10. CENTRUM SILVER                     /01292501/ [Concomitant]
     Route: 048
  11. FISH OIL [Concomitant]
     Route: 048
  12. CALCIUM +VIT D [Concomitant]
     Dosage: 2000 IU, UNK
     Route: 048
  13. LISINOPRIL/HCTZ [Concomitant]
     Route: 048

REACTIONS (2)
  - Epileptic aura [Not Recovered/Not Resolved]
  - Therapeutic response decreased [Unknown]
